FAERS Safety Report 8805951 (Version 1)
Quarter: 2012Q4

REPORT INFORMATION
  Report Type: Spontaneous
  Country: US (occurrence: None)
  Receive Date: 20120919
  Receipt Date: 20120919
  Transmission Date: 20130627
  Serious: Yes (Life-Threatening, Hospitalization, Disabling)
  Sender: FDA-Public Use
  Company Number: None

PATIENT
  Age: 82 Year
  Sex: Female
  Weight: 50 kg

DRUGS (5)
  1. PRADAXA [Suspect]
     Route: 048
  2. METOPROLOL [Concomitant]
  3. OMEGA-3 FISH OIL [Concomitant]
  4. OMEPRAZOLE [Concomitant]
  5. SIMVASTATIN [Concomitant]

REACTIONS (5)
  - Gastrointestinal haemorrhage [None]
  - Splenic injury [None]
  - Peritoneal haemorrhage [None]
  - Hypotension [None]
  - Haemodynamic instability [None]
